FAERS Safety Report 11004012 (Version 1)
Quarter: 2015Q2

REPORT INFORMATION
  Report Type: Spontaneous
  Country: US (occurrence: None)
  Receive Date: 20150407
  Receipt Date: 20150407
  Transmission Date: 20150821
  Serious: Yes (Other)
  Sender: FDA-Public Use
  Company Number: HA15-090-AE

PATIENT
  Age: 54 Year
  Sex: Female

DRUGS (15)
  1. LYRICA [Concomitant]
     Active Substance: PREGABALIN
  2. PRILOSEC [Concomitant]
     Active Substance: OMEPRAZOLE MAGNESIUM
  3. CENTRUM SILVER [Concomitant]
     Active Substance: VITAMINS
  4. NAPROXEN. [Concomitant]
     Active Substance: NAPROXEN
  5. NORTRYPTYLINE [Concomitant]
  6. FENTANYL TRANSDERMAL SYSTEM [Concomitant]
     Active Substance: FENTANYL
  7. SYNTHROID [Concomitant]
     Active Substance: LEVOTHYROXINE SODIUM
  8. PROAIR HFA [Concomitant]
     Active Substance: ALBUTEROL SULFATE
  9. FUROSEMIDE. [Concomitant]
     Active Substance: FUROSEMIDE
  10. ALBUTEROL SULFATE. [Concomitant]
     Active Substance: ALBUTEROL SULFATE
  11. MEDROXY-PROGESTERONE [Concomitant]
  12. FISH OIL [Concomitant]
     Active Substance: FISH OIL
  13. SMZ / TMP [Suspect]
     Active Substance: SULFAMETHOXAZOLE\TRIMETHOPRIM
     Dates: start: 201504
  14. BACLOFEN. [Concomitant]
     Active Substance: BACLOFEN
  15. PREMARIN [Concomitant]
     Active Substance: ESTROGENS, CONJUGATED

REACTIONS (3)
  - Disorientation [None]
  - Feeling drunk [None]
  - Drug hypersensitivity [None]

NARRATIVE: CASE EVENT DATE: 201404
